FAERS Safety Report 22738389 (Version 7)
Quarter: 2024Q3

REPORT INFORMATION
  Report Type: Spontaneous
  Country: US (occurrence: US)
  Receive Date: 20230721
  Receipt Date: 20240911
  Transmission Date: 20241016
  Serious: No
  Sender: PFIZER
  Company Number: US-PFIZER INC-PV202300124788

PATIENT
  Age: 79 Year
  Sex: Female

DRUGS (2)
  1. IBRANCE [Suspect]
     Active Substance: PALBOCICLIB
     Dosage: 100 MG
  2. IBRANCE [Suspect]
     Active Substance: PALBOCICLIB
     Dosage: 75 MG, CYCLIC (ONCE DAILY, FOR 14 DAYS ON THEN 14 DAYS OFF, TAKE WITH OR WITHOUT FOOD)
     Route: 048

REACTIONS (4)
  - White blood cell count increased [Unknown]
  - Brain fog [Unknown]
  - Fatigue [Unknown]
  - Off label use [Unknown]
